FAERS Safety Report 8174943-X (Version None)
Quarter: 2012Q1

REPORT INFORMATION
  Report Type: 
  Country: None (occurrence: None)
  Receive Date: 20120229
  Receipt Date: 20111004
  Transmission Date: 20120608
  Serious: No
  Sender: FDA-Public Use
  Company Number: US-GLAXOSMITHKLINE-A0947007A

PATIENT
  Age: 32 Year
  Sex: Male

DRUGS (2)
  1. NO CONCURRENT MEDICATION [Concomitant]
  2. VALTREX [Suspect]
     Indication: GENITAL HERPES
     Dosage: 1000MG PER DAY
     Route: 048
     Dates: start: 20110930

REACTIONS (5)
  - OCULAR HYPERAEMIA [None]
  - VISION BLURRED [None]
  - EAR DISCOMFORT [None]
  - DRY EYE [None]
  - HYPOACUSIS [None]
